FAERS Safety Report 6328570-7 (Version None)
Quarter: 2009Q3

REPORT INFORMATION
  Report Type: 
  Country: None (occurrence: None)
  Receive Date: 20090826
  Receipt Date: 20090817
  Transmission Date: 20100115
  Serious: Yes (Hospitalization, Other)
  Sender: FDA-Public Use
  Company Number: CA-JNJFOC-20090400683

PATIENT
  Sex: Male
  Weight: 86 kg

DRUGS (7)
  1. REMICADE [Suspect]
     Indication: RHEUMATOID ARTHRITIS
     Route: 042
  2. DILAUDID [Concomitant]
  3. METHADONE [Concomitant]
  4. GRAVOL TAB [Concomitant]
  5. CALCIUM [Concomitant]
  6. PANTOPRAZOLE SODIUM [Concomitant]
  7. PLAQUENIL [Concomitant]

REACTIONS (5)
  - INFECTION [None]
  - INFUSION RELATED REACTION [None]
  - KNEE ARTHROPLASTY [None]
  - NAUSEA [None]
  - RHEUMATOID ARTHRITIS [None]
